FAERS Safety Report 13151639 (Version 1)
Quarter: 2017Q1

REPORT INFORMATION
  Report Type: Spontaneous
  Country: US (occurrence: US)
  Receive Date: 20170125
  Receipt Date: 20170125
  Transmission Date: 20170428
  Serious: No
  Sender: FDA-Public Use
  Company Number: US-PFIZER INC-2015421963

PATIENT
  Age: 63 Year
  Sex: Female

DRUGS (3)
  1. CORTEF [Suspect]
     Active Substance: HYDROCORTISONE
     Indication: HEADACHE
  2. CORTEF [Suspect]
     Active Substance: HYDROCORTISONE
     Indication: ASTHMA
  3. CORTEF [Suspect]
     Active Substance: HYDROCORTISONE
     Indication: ABDOMINAL DISCOMFORT
     Dosage: 20 MG, 1X/DAY, (TAKE 4 TABS (20 MG) PO QD)
     Route: 048

REACTIONS (2)
  - Product use issue [Unknown]
  - Therapeutic response unexpected [Unknown]
